FAERS Safety Report 11391850 (Version 1)
Quarter: 2015Q3

REPORT INFORMATION
  Report Type: Spontaneous
  Country: US (occurrence: US)
  Receive Date: 20150818
  Receipt Date: 20150818
  Transmission Date: 20151125
  Serious: No
  Sender: FDA-Public Use
  Company Number: US-SHIRE-US201510464

PATIENT
  Age: 55 Year
  Sex: Female

DRUGS (1)
  1. VYVANSE [Suspect]
     Active Substance: LISDEXAMFETAMINE DIMESYLATE
     Indication: BINGE EATING
     Dosage: 50 MG, UNKNOWN
     Route: 048

REACTIONS (4)
  - Obsessive thoughts [Unknown]
  - Compulsions [Unknown]
  - Fear [Unknown]
  - Anxiety [Unknown]
